FAERS Safety Report 14676814 (Version 2)
Quarter: 2018Q2

REPORT INFORMATION
  Report Type: Spontaneous
  Country: US (occurrence: US)
  Receive Date: 20180324
  Receipt Date: 20180528
  Transmission Date: 20180711
  Serious: No
  Sender: FDA-Public Use
  Company Number: US-ROCHE-2096278

PATIENT
  Age: 66 Year
  Sex: Female
  Weight: 61.29 kg

DRUGS (4)
  1. OCREVUS [Suspect]
     Active Substance: OCRELIZUMAB
     Indication: MULTIPLE SCLEROSIS
     Dosage: ON 26/MAR/2018, HER SECOND INFUSION OF OCRELIZUMAB WAS SCHEDULED.
     Route: 065
     Dates: start: 20180312
  2. AZELASTINE. [Concomitant]
     Active Substance: AZELASTINE HYDROCHLORIDE
     Indication: VASOMOTOR RHINITIS
     Route: 045
     Dates: start: 201509
  3. OCREVUS [Suspect]
     Active Substance: OCRELIZUMAB
     Route: 065
  4. ACTONEL [Concomitant]
     Active Substance: RISEDRONATE SODIUM
     Route: 048

REACTIONS (1)
  - Herpes zoster [Recovered/Resolved]

NARRATIVE: CASE EVENT DATE: 20180320
